FAERS Safety Report 12640344 (Version 1)
Quarter: 2016Q3

REPORT INFORMATION
  Report Type: Spontaneous
  Country: US (occurrence: None)
  Receive Date: 20160809
  Receipt Date: 20160809
  Transmission Date: 20161109
  Serious: Yes (Hospitalization)
  Sender: FDA-Public Use
  Company Number: None

PATIENT
  Age: 57 Year
  Sex: Male
  Weight: 77.6 kg

DRUGS (3)
  1. LEUCOVORIN CALCIUM. [Suspect]
     Active Substance: LEUCOVORIN CALCIUM
     Dates: end: 20160705
  2. ELOXATIN [Suspect]
     Active Substance: OXALIPLATIN
     Dates: end: 20160613
  3. 5-FLUOROURACIL (5-FU) [Suspect]
     Active Substance: FLUOROURACIL
     Dates: end: 20151116

REACTIONS (6)
  - Chest pain [None]
  - Abdominal pain [None]
  - Pancreatitis [None]
  - Haemangioma [None]
  - Bile duct stone [None]
  - Hepatic steatosis [None]

NARRATIVE: CASE EVENT DATE: 20160712
